FAERS Safety Report 5366685-0 (Version None)
Quarter: 2007Q2

REPORT INFORMATION
  Report Type: 
  Country: None (occurrence: None)
  Receive Date: 20070622
  Receipt Date: 20060501
  Transmission Date: 20071010
  Serious: No
  Sender: FDA-Public Use
  Company Number: US-ASTRAZENECA-2006UW08486

PATIENT
  Age: 41 Year
  Sex: Female
  Weight: 81.6 kg

DRUGS (4)
  1. RHINOCORT [Suspect]
     Indication: NASAL CONGESTION
     Route: 045
     Dates: start: 20060427
  2. RHINOCORT [Suspect]
     Indication: HYPERSENSITIVITY
     Route: 045
     Dates: start: 20060427
  3. LEVOXYL [Concomitant]
  4. QVAR 40 [Concomitant]

REACTIONS (1)
  - HEADACHE [None]
